FAERS Safety Report 4811045-1 (Version None)
Quarter: 2005Q4

REPORT INFORMATION
  Report Type: 
  Country: None (occurrence: None)
  Receive Date: 20051027
  Receipt Date: 20051019
  Transmission Date: 20060501
  Serious: Yes (Hospitalization)
  Sender: FDA-Public Use
  Company Number: US-JNJFOC-20051004621

PATIENT
  Sex: Male

DRUGS (11)
  1. RISPERDAL [Suspect]
     Indication: DEMENTIA
     Route: 048
     Dates: start: 20050901, end: 20051001
  2. NAMENDA [Concomitant]
     Indication: DEMENTIA
     Route: 048
  3. ARICEPT [Concomitant]
     Indication: DEMENTIA
     Route: 048
  4. ATENOLOL [Concomitant]
     Route: 048
  5. LANOXIN [Concomitant]
     Route: 048
  6. COLCHICINE [Concomitant]
     Route: 048
  7. CARDURA [Concomitant]
     Indication: BLOOD PRESSURE
     Route: 048
  8. K-TAB [Concomitant]
     Route: 048
  9. COUMADIN [Concomitant]
     Dosage: (2.5 MG DAILY; EVERY THURSDAY 5 MG)
     Route: 048
  10. COUMADIN [Concomitant]
     Dosage: (2.5 MG DAILY; EVERY THURSDAY 5 MG)
     Route: 048
  11. DEMADEX [Concomitant]
     Route: 048

REACTIONS (1)
  - HALLUCINATION, VISUAL [None]
